FAERS Safety Report 16737423 (Version 3)
Quarter: 2019Q4

REPORT INFORMATION
  Report Type: Spontaneous
  Country: US (occurrence: US)
  Receive Date: 20190823
  Receipt Date: 20191112
  Transmission Date: 20200122
  Serious: Yes (Other)
  Sender: FDA-Public Use
  Company Number: US-IMPAX LABORATORIES, LLC-2019-IPXL-01675

PATIENT
  Age: 55 Year
  Sex: Male
  Weight: 91 kg

DRUGS (8)
  1. RYTARY [Concomitant]
     Active Substance: CARBIDOPA\LEVODOPA
     Indication: PARKINSON^S DISEASE
     Dosage: 4 CAPSULES, 3 /DAY
     Route: 048
     Dates: start: 20190131, end: 201902
  2. CARBIDOPA LEVODOPA [Suspect]
     Active Substance: CARBIDOPA\LEVODOPA
     Indication: PARKINSON^S DISEASE
     Dosage: 25/250MG, 1 DOSAGE FORM, 5 /DAY
     Route: 065
     Dates: start: 201909
  3. MORINGA [ASCORBIC ACID;MORINGA OLEIFERA] [Concomitant]
     Active Substance: ASCORBIC ACID\HERBALS\MORINGA OLEIFERA LEAF
     Indication: SUPPLEMENTATION THERAPY
     Dosage: TOTAL OF 6 TIMES A DAY
     Route: 065
  4. PRAMIPEXOLE. [Concomitant]
     Active Substance: PRAMIPEXOLE
     Indication: PRODUCT USED FOR UNKNOWN INDICATION
     Dosage: HALF A TABLET 3 TIMES A DAY
     Route: 065
  5. CARBIDOPA-LEVODOPA ER [Suspect]
     Active Substance: CARBIDOPA\LEVODOPA
     Indication: PARKINSON^S DISEASE
     Dosage: 50/200MG, 1 DOSAGE FORM, 5 /DAY
     Route: 065
     Dates: start: 201909
  6. RYTARY [Concomitant]
     Active Substance: CARBIDOPA\LEVODOPA
     Dosage: 4 CAPSULES, 3 /DAY
     Route: 048
     Dates: end: 20191017
  7. THYROID [Concomitant]
     Active Substance: LEVOTHYROXINE\LIOTHYRONINE
     Indication: PRODUCT USED FOR UNKNOWN INDICATION
     Dosage: UNK UNK, 1 /DAY
     Route: 065
  8. ENTACAPONE. [Concomitant]
     Active Substance: ENTACAPONE
     Indication: ADJUVANT THERAPY
     Dosage: 200 MILLIGRAM, TID
     Route: 065

REACTIONS (5)
  - Rib fracture [Unknown]
  - Sternal fracture [Unknown]
  - Contusion [Recovered/Resolved]
  - Fall [Not Recovered/Not Resolved]
  - Freezing phenomenon [Not Recovered/Not Resolved]

NARRATIVE: CASE EVENT DATE: 201902
